FAERS Safety Report 5035315-X (Version None)
Quarter: 2006Q2

REPORT INFORMATION
  Report Type: 
  Country: None (occurrence: None)
  Receive Date: 20060622
  Receipt Date: 20060606
  Transmission Date: 20061013
  Serious: Yes (Hospitalization)
  Sender: FDA-Public Use
  Company Number: FR200606001255

PATIENT
  Age: 66 Year
  Sex: Male

DRUGS (11)
  1. PROZAC [Suspect]
     Indication: DEPRESSION
     Dosage: 20 MG, ORAL
     Route: 048
     Dates: end: 20060414
  2. CORDARONE [Concomitant]
  3. PRAVASTATIN [Concomitant]
  4. OMEPRAZOLE [Concomitant]
  5. BISOPROLOL FUMARATE [Concomitant]
  6. COVERSYL (PERINDOPRIL) [Concomitant]
  7. LASIX [Concomitant]
  8. LEXOMIL (BROMAZEPAM) [Concomitant]
  9. STILLNOX (ZOLPIDEM) [Concomitant]
  10. PLAVIX [Concomitant]
  11. PREVISCAN (FLUINDIONE) [Concomitant]

REACTIONS (5)
  - CARDIAC DISORDER [None]
  - DYSPNOEA EXERTIONAL [None]
  - HYPOXIA [None]
  - IATROGENIC INFECTION [None]
  - INTERSTITIAL LUNG DISEASE [None]
